FAERS Safety Report 6027784-3 (Version None)
Quarter: 2009Q1

REPORT INFORMATION
  Report Type: 
  Country: None (occurrence: None)
  Receive Date: 20090105
  Receipt Date: 20081223
  Transmission Date: 20090719
  Serious: Yes (Hospitalization, Other)
  Sender: FDA-Public Use
  Company Number: JP-ROXANE LABORATORIES, INC.-2008-RO-00462RO

PATIENT
  Age: 66 Year
  Sex: Male
  Weight: 40 kg

DRUGS (15)
  1. LIDOCAINE [Suspect]
     Indication: NERVE BLOCK
  2. THEOPHYLLINE [Suspect]
     Indication: ASTHMA
  3. THEOPHYLLINE [Suspect]
     Indication: EMPHYSEMA
  4. DIAZEPAM [Suspect]
     Indication: CONVULSION
     Route: 042
  5. STEROID [Suspect]
     Indication: ASTHMA
  6. STEROID [Suspect]
     Indication: EMPHYSEMA
  7. EPINEPHRINE [Suspect]
     Indication: NERVE BLOCK
  8. ATROPINE [Suspect]
     Indication: BRADYCARDIA
     Route: 042
  9. DOPAMINE HCL [Suspect]
     Indication: BLOOD PRESSURE DECREASED
  10. OXYGEN [Suspect]
     Indication: LOSS OF CONSCIOUSNESS
  11. OXYGEN [Suspect]
     Indication: OXYGEN SATURATION DECREASED
  12. FUROSEMIDE [Concomitant]
     Indication: WHEEZING
     Route: 042
  13. NEOPHYLLIN [Concomitant]
     Indication: WHEEZING
  14. PHYSIOLOGICAL SALINE [Concomitant]
     Indication: WHEEZING
  15. HYDROCORTISONE [Concomitant]

REACTIONS (10)
  - BLOOD PRESSURE DECREASED [None]
  - BRADYCARDIA [None]
  - CONVULSION [None]
  - DRUG TOXICITY [None]
  - FISTULA [None]
  - LOSS OF CONSCIOUSNESS [None]
  - OXYGEN SATURATION DECREASED [None]
  - PURULENT DISCHARGE [None]
  - SINUS ARREST [None]
  - WHEEZING [None]
